FAERS Safety Report 12650930 (Version 1)
Quarter: 2016Q3

REPORT INFORMATION
  Report Type: Spontaneous
  Country: US (occurrence: None)
  Receive Date: 20160812
  Receipt Date: 20160812
  Transmission Date: 20161109
  Serious: Yes (Life-Threatening, Hospitalization, Disabling)
  Sender: FDA-Public Use
  Company Number: None

PATIENT
  Age: 49 Year
  Sex: Female
  Weight: 48.08 kg

DRUGS (1)
  1. CYMBALTA [Suspect]
     Active Substance: DULOXETINE HYDROCHLORIDE
     Indication: FIBROMYALGIA
     Route: 048

REACTIONS (12)
  - Depressed mood [None]
  - Paraesthesia [None]
  - Tremor [None]
  - Dizziness [None]
  - Hyperhidrosis [None]
  - Confusional state [None]
  - Fatigue [None]
  - Aggression [None]
  - Suicidal ideation [None]
  - Anxiety [None]
  - Vomiting [None]
  - Nervous system disorder [None]

NARRATIVE: CASE EVENT DATE: 20160701
